FAERS Safety Report 9132215 (Version 1)
Quarter: 2013Q1

REPORT INFORMATION
  Report Type: Spontaneous
  Country: US (occurrence: US)
  Receive Date: 20130301
  Receipt Date: 20130301
  Transmission Date: 20140127
  Serious: Yes (Other)
  Sender: FDA-Public Use
  Company Number: US-ROCHE-1079941

PATIENT
  Sex: Male
  Weight: 77.18 kg

DRUGS (1)
  1. ACCUTANE [Suspect]
     Indication: ACNE
     Route: 065
     Dates: start: 1982, end: 1984

REACTIONS (4)
  - Colitis ulcerative [Unknown]
  - Inflammatory bowel disease [Unknown]
  - Suicidal ideation [Unknown]
  - Irritable bowel syndrome [Unknown]
